FAERS Safety Report 4584655-7 (Version None)
Quarter: 2005Q1

REPORT INFORMATION
  Report Type: 
  Country: None (occurrence: None)
  Receive Date: 20050125
  Receipt Date: 20041029
  Transmission Date: 20050727
  Serious: No
  Sender: FDA-Public Use
  Company Number: USA040978572

PATIENT
  Age: 55 Year
  Sex: Female
  Weight: 51 kg

DRUGS (1)
  1. FORTEO [Suspect]
     Indication: OSTEOPOROSIS
     Dates: start: 20040907

REACTIONS (6)
  - ASTHENIA [None]
  - DIZZINESS [None]
  - INJECTION SITE ERYTHEMA [None]
  - MYALGIA [None]
  - PAIN [None]
  - TINNITUS [None]
